FAERS Safety Report 6801376-8 (Version None)
Quarter: 2010Q2

REPORT INFORMATION
  Report Type: 
  Country: None (occurrence: None)
  Receive Date: 20100629
  Receipt Date: 20100621
  Transmission Date: 20101027
  Serious: Yes (Hospitalization)
  Sender: FDA-Public Use
  Company Number: A0867250A

PATIENT
  Sex: Female
  Weight: 22 kg

DRUGS (7)
  1. AMOXICILLIN AND CLAVULANATE POTASSIUM [Suspect]
     Indication: INFLUENZA
     Route: 065
  2. BEROTEC [Concomitant]
     Dosage: 4DROP TWICE PER DAY
     Dates: start: 20100619
  3. ATROVENT [Concomitant]
     Dosage: 6.3ML TWICE PER DAY
     Dates: start: 20100619
  4. BUDESONIDE [Concomitant]
     Dosage: 1PUFF IN THE MORNING
     Route: 045
     Dates: start: 20090101
  5. SODIUM CHLORIDE [Concomitant]
     Dosage: 2PUFF TWICE PER DAY
     Dates: start: 20100609
  6. HIDROXIZIN [Concomitant]
     Dosage: 7.5ML THREE TIMES PER DAY
  7. LUFTAL [Concomitant]
     Dosage: 22DROP PER DAY

REACTIONS (3)
  - CONSTIPATION [None]
  - RHINORRHOEA [None]
  - VOMITING [None]
